FAERS Safety Report 7969381 (Version 7)
Quarter: 2013Q3

REPORT INFORMATION
  Report Type: Spontaneous
  Country: US (occurrence: US)
  Receive Date: 20110601
  Receipt Date: 20130707
  Transmission Date: 20140515
  Serious: Yes (Other)
  Sender: FDA-Public Use
  Company Number: US-B.I. PHARMACEUTICALS,INC./RIDGEFIELD-2011-BP-13101BP

PATIENT
  Age: 71 Year
  Sex: Male

DRUGS (14)
  1. PRADAXA [Suspect]
     Indication: ATRIAL FIBRILLATION
     Dosage: 300 MG
     Route: 048
     Dates: start: 20110318, end: 20110510
  2. PRADAXA [Suspect]
     Dosage: 300 MG
     Route: 048
     Dates: start: 20111005
  3. CARDIZEM [Suspect]
  4. METOPROLOL [Suspect]
  5. LOSARTAN [Concomitant]
     Indication: ATRIAL FIBRILLATION
     Dosage: 25 MG
     Route: 048
     Dates: start: 20110301
  6. LOSARTAN [Concomitant]
     Indication: HYPERTENSION
  7. ASPIRIN [Concomitant]
     Indication: ATRIAL FIBRILLATION
     Dosage: 325 MG
     Route: 048
     Dates: start: 20110511
  8. TYLENOL [Concomitant]
     Route: 048
  9. FISH OIL [Concomitant]
     Dosage: 1000 MG
  10. VITAMIN D [Concomitant]
     Indication: VITAMIN D DECREASED
     Dosage: 5000 U
     Route: 048
  11. OMEGA 3 [Concomitant]
     Dosage: 1000 MG
     Route: 048
  12. CO Q10 [Concomitant]
     Dosage: 200 MG
     Route: 048
  13. MAGNESIUM [Concomitant]
     Dosage: 50 MG
     Route: 048
  14. POTASSIUM [Concomitant]
     Dosage: 99 MG
     Route: 048

REACTIONS (13)
  - Basal cell carcinoma [Recovered/Resolved]
  - Feeling abnormal [Not Recovered/Not Resolved]
  - Head discomfort [Not Recovered/Not Resolved]
  - Diarrhoea [Not Recovered/Not Resolved]
  - Depressed mood [Recovered/Resolved]
  - Blood testosterone decreased [Not Recovered/Not Resolved]
  - Fat tissue increased [Not Recovered/Not Resolved]
  - Mood swings [Not Recovered/Not Resolved]
  - Dizziness [Not Recovered/Not Resolved]
  - Abdominal distension [Not Recovered/Not Resolved]
  - Weight increased [Not Recovered/Not Resolved]
  - Fatigue [Not Recovered/Not Resolved]
  - Dyspepsia [Recovered/Resolved]
